FAERS Safety Report 19688613 (Version 1)
Quarter: 2021Q3

REPORT INFORMATION
  Report Type: Spontaneous
  Country: US (occurrence: US)
  Receive Date: 20210812
  Receipt Date: 20210812
  Transmission Date: 20211014
  Serious: No
  Sender: FDA-Public Use
  Company Number: US-COLGATE PALMOLIVE COMPANY-20201102151

PATIENT
  Age: 73 Year
  Sex: Female

DRUGS (1)
  1. COLGATE TOTAL DAILY REPAIR [Suspect]
     Active Substance: SODIUM FLUORIDE\TRICLOSAN
     Dosage: TWO PEA SIZES
     Dates: start: 20201102, end: 20201103

REACTIONS (6)
  - Product taste abnormal [Unknown]
  - Oral discomfort [Recovered/Resolved]
  - Glossitis [Recovered/Resolved]
  - Oral mucosal erythema [Recovered/Resolved]
  - Stomatitis [Recovered/Resolved]
  - Gingival discomfort [Recovered/Resolved]
